FAERS Safety Report 17699706 (Version 1)
Quarter: 2020Q2

REPORT INFORMATION
  Report Type: Spontaneous
  Country: US (occurrence: US)
  Receive Date: 20200423
  Receipt Date: 20200423
  Transmission Date: 20200714
  Serious: Yes (Other)
  Sender: FDA-Public Use
  Company Number: US-GILEAD-2020-0460636

PATIENT
  Age: 66 Year
  Sex: Male
  Weight: 74.7 kg

DRUGS (1)
  1. YESCARTA [Suspect]
     Active Substance: AXICABTAGENE CILOLEUCEL
     Indication: DIFFUSE LARGE B-CELL LYMPHOMA
     Dosage: 68 ML
     Route: 042
     Dates: start: 20200106, end: 20200106

REACTIONS (3)
  - Neurotoxicity [Recovered/Resolved]
  - Autonomic neuropathy [Recovering/Resolving]
  - Autoimmune neuropathy [Recovering/Resolving]

NARRATIVE: CASE EVENT DATE: 20200118
